FAERS Safety Report 6147751-9 (Version None)
Quarter: 2009Q2

REPORT INFORMATION
  Report Type: 
  Country: None (occurrence: None)
  Receive Date: 20090408
  Receipt Date: 20090330
  Transmission Date: 20091009
  Serious: Yes (Hospitalization)
  Sender: FDA-Public Use
  Company Number: US-BIOGENIDEC-2009BI004183

PATIENT
  Sex: Female

DRUGS (1)
  1. TYSABRI [Suspect]
     Indication: MULTIPLE SCLEROSIS
     Route: 042
     Dates: start: 20081022, end: 20081219

REACTIONS (20)
  - ABASIA [None]
  - APHASIA [None]
  - BLINDNESS [None]
  - BLOOD PRESSURE ABNORMAL [None]
  - BLOOD PRESSURE DECREASED [None]
  - COGNITIVE DISORDER [None]
  - COLOUR BLINDNESS [None]
  - CRYING [None]
  - DEPRESSION [None]
  - DYSGRAPHIA [None]
  - DYSPHONIA [None]
  - EMOTIONAL DISORDER [None]
  - FALL [None]
  - FEAR [None]
  - LOSS OF CONSCIOUSNESS [None]
  - MEMORY IMPAIRMENT [None]
  - MENTAL IMPAIRMENT [None]
  - MULTIPLE SCLEROSIS [None]
  - NECK PAIN [None]
  - TREMOR [None]
